FAERS Safety Report 5351882-0 (Version None)
Quarter: 2007Q2

REPORT INFORMATION
  Report Type: 
  Country: None (occurrence: None)
  Receive Date: 20070609
  Receipt Date: 20070605
  Transmission Date: 20071010
  Serious: Yes (Other)
  Sender: FDA-Public Use
  Company Number: PL-ABBOTT-07P-129-0370539-00

PATIENT
  Age: 51 Year
  Sex: Female
  Weight: 69 kg

DRUGS (12)
  1. NIMBEX [Suspect]
     Indication: ANAESTHESIA
     Route: 042
  2. NIMBEX [Suspect]
     Route: 042
  3. ISOFLURANE [Suspect]
     Indication: ANAESTHESIA
     Route: 055
  4. ISOFLURANE [Suspect]
     Route: 055
  5. FENTANYL [Suspect]
     Indication: ANAESTHESIA
     Route: 065
  6. THIOPENTAL SODIUM [Suspect]
     Indication: ANAESTHESIA
     Route: 065
  7. THIOPENTAL SODIUM [Suspect]
     Route: 042
  8. MIDAZOLAM HCL [Concomitant]
     Indication: DRUG USE FOR UNKNOWN INDICATION
     Route: 048
  9. MIDAZOLAM HCL [Concomitant]
     Route: 042
  10. OXYGEN [Concomitant]
     Indication: DRUG USE FOR UNKNOWN INDICATION
     Route: 055
  11. OXYGEN [Concomitant]
  12. NITROUS OXIDE W/ OXYGEN [Concomitant]
     Indication: DRUG USE FOR UNKNOWN INDICATION

REACTIONS (2)
  - BLOOD PRESSURE DECREASED [None]
  - UNWANTED AWARENESS DURING ANAESTHESIA [None]
